FAERS Safety Report 8607600 (Version 2)
Quarter: 2013Q3

REPORT INFORMATION
  Report Type: Spontaneous
  Country: US (occurrence: US)
  Receive Date: 20120611
  Receipt Date: 20130725
  Transmission Date: 20140515
  Serious: Yes (Hospitalization)
  Sender: FDA-Public Use
  Company Number: US-PFIZER INC-2012134181

PATIENT
  Age: 65 Year
  Sex: Female
  Weight: 72.56 kg

DRUGS (5)
  1. LISINOPRIL [Suspect]
     Indication: HYPERTENSION
     Dosage: UNK
  2. QUINAPRIL HCL [Suspect]
     Indication: HYPERTENSION
     Dosage: 40 MG, 2X/DAY
  3. METFORMIN [Concomitant]
     Indication: DIABETES MELLITUS
     Dosage: 500 MG, 3X/DAY
  4. DILTIAZEM [Concomitant]
     Indication: HYPERTENSION
     Dosage: 180 MG, DAILY
  5. LEVOTHYROXINE [Concomitant]
     Indication: HYPOTHYROIDISM
     Dosage: 150 UG, DAILY

REACTIONS (1)
  - Drug ineffective [Unknown]
